FAERS Safety Report 22620855 (Version 1)
Quarter: 2023Q2

REPORT INFORMATION
  Report Type: Spontaneous
  Country: GB (occurrence: None)
  Receive Date: 20230617
  Receipt Date: 20230617
  Transmission Date: 20230721
  Serious: Yes (Hospitalization)
  Sender: FDA-Public Use
  Company Number: None

PATIENT
  Age: 7 Month
  Sex: Female

DRUGS (5)
  1. HYDROCORTISONE\MICONAZOLE NITRATE [Suspect]
     Active Substance: HYDROCORTISONE\MICONAZOLE NITRATE
     Indication: Eczema
     Dates: start: 20230101, end: 20230105
  2. TRIMOVATE [Suspect]
     Active Substance: CLOBETASONE BUTYRATE\NYSTATIN\OXYTETRACYCLINE CALCIUM
  3. BETAMETHASONE VALERATE\FUSIDIC ACID [Suspect]
     Active Substance: BETAMETHASONE VALERATE\FUSIDIC ACID
  4. FUCIDIN (FUSIDIC ACID) [Suspect]
     Active Substance: FUSIDIC ACID
  5. LOCOID [Suspect]
     Active Substance: HYDROCORTISONE BUTYRATE

REACTIONS (1)
  - Eczema [None]
